FAERS Safety Report 7025495-9 (Version None)
Quarter: 2010Q4

REPORT INFORMATION
  Report Type: 
  Country: None (occurrence: None)
  Receive Date: 20101001
  Receipt Date: 20100924
  Transmission Date: 20110411
  Serious: Yes (Death, Other)
  Sender: FDA-Public Use
  Company Number: US-AMGEN-QUU396466

PATIENT
  Sex: Female
  Weight: 95.4 kg

DRUGS (1)
  1. NPLATE [Suspect]
     Indication: IDIOPATHIC THROMBOCYTOPENIC PURPURA
     Dates: start: 20090603, end: 20090729

REACTIONS (8)
  - AORTIC STENOSIS [None]
  - BLAST CELL COUNT INCREASED [None]
  - DRUG INEFFECTIVE [None]
  - HAEMORRHAGE [None]
  - INCREASED TENDENCY TO BRUISE [None]
  - MYELODYSPLASTIC SYNDROME [None]
  - SEPSIS [None]
  - THROMBOCYTOPENIA [None]
